FAERS Safety Report 8309348-1 (Version None)
Quarter: 2012Q2

REPORT INFORMATION
  Report Type: 
  Country: None (occurrence: None)
  Receive Date: 20120425
  Receipt Date: 20120417
  Transmission Date: 20120825
  Serious: Yes (Other)
  Sender: FDA-Public Use
  Company Number: US-ASTRAZENECA-2012SE11149

PATIENT
  Age: 64 Year
  Sex: Female
  Weight: 90.7 kg

DRUGS (2)
  1. SYMBICORT [Suspect]
     Route: 055
  2. NEXIUM [Suspect]
     Route: 048

REACTIONS (21)
  - FOOT FRACTURE [None]
  - ANXIETY [None]
  - OSTEOARTHRITIS [None]
  - OEDEMA [None]
  - NASOPHARYNGITIS [None]
  - FALL [None]
  - PRURIGO [None]
  - ARTHRALGIA [None]
  - HYPERLIPIDAEMIA [None]
  - OBESITY [None]
  - DEPRESSION [None]
  - RHINOSPORIDIOSIS [None]
  - HERNIA [None]
  - ANKLE FRACTURE [None]
  - ESSENTIAL HYPERTENSION [None]
  - ACUTE SINUSITIS [None]
  - CHRONIC OBSTRUCTIVE PULMONARY DISEASE [None]
  - PAIN IN EXTREMITY [None]
  - FIBULA FRACTURE [None]
  - TIBIA FRACTURE [None]
  - BIPOLAR I DISORDER [None]
